FAERS Safety Report 9187699 (Version 1)
Quarter: 2013Q1

REPORT INFORMATION
  Report Type: Report from Study
  Country: US (occurrence: US)
  Receive Date: 20130325
  Receipt Date: 20130325
  Transmission Date: 20140127
  Serious: Yes (Hospitalization)
  Sender: FDA-Public Use
  Company Number: US-AMGEN-USACT2013019790

PATIENT
  Age: 45 Year
  Sex: Female
  Weight: 90 kg

DRUGS (9)
  1. PEGFILGRASTIM [Suspect]
     Indication: BONE PAIN
     Dosage: 6 MG, UNK
     Dates: start: 20130307
  2. DOCETAXEL [Concomitant]
     Dosage: 140 MG/M2, UNK
     Dates: start: 20130306
  3. CYCLOPHOSPHAMIDE [Concomitant]
     Dosage: 1115 MG/M2, UNK
     Dates: start: 20130306
  4. CHLORTHALIDONE [Concomitant]
     Dosage: 25 MG, UNK
     Route: 048
     Dates: start: 201005
  5. KLOR-CON [Concomitant]
     Dosage: 20 MEQ, UNK
     Route: 048
     Dates: start: 20121212
  6. DOCUSATE SODIUM [Concomitant]
     Dosage: 50 MG, UNK
     Route: 048
     Dates: start: 201110
  7. POLYCARBOPHIL CALCIUM [Concomitant]
     Dosage: 625 MG, UNK
     Route: 048
     Dates: start: 201110
  8. PROCARDIA [Concomitant]
     Dosage: 30 MG, UNK
     Route: 048
     Dates: start: 201005
  9. HYDROCODONE [Concomitant]
     Dosage: 10 MG, UNK
     Route: 048
     Dates: start: 20130124, end: 20130219

REACTIONS (4)
  - Pain [Recovered/Resolved]
  - Diarrhoea [Recovered/Resolved]
  - Dehydration [Recovered/Resolved]
  - Fatigue [Recovered/Resolved]
